FAERS Safety Report 5900727-6 (Version None)
Quarter: 2008Q3

REPORT INFORMATION
  Report Type: 
  Country: None (occurrence: None)
  Receive Date: 20080928
  Receipt Date: 20080922
  Transmission Date: 20090109
  Serious: Yes (Hospitalization)
  Sender: FDA-Public Use
  Company Number: ES-BAYER-200717650GPV

PATIENT
  Age: 44 Year
  Sex: Male

DRUGS (1)
  1. ULTRAVIST (PHARMACY BULK) [Suspect]
     Indication: SCAN
     Dosage: TOTAL DAILY DOSE: 120 ML
     Route: 042
     Dates: start: 20070430, end: 20070430

REACTIONS (3)
  - PALLOR [None]
  - PYREXIA [None]
  - TREMOR [None]
